FAERS Safety Report 9432533 (Version 1)
Quarter: 2013Q3

REPORT INFORMATION
  Report Type: Spontaneous
  Country: US (occurrence: None)
  Receive Date: 20130730
  Receipt Date: 20130730
  Transmission Date: 20140515
  Serious: Yes (Hospitalization, Disabling, Other)
  Sender: FDA-Public Use
  Company Number: None

PATIENT
  Sex: Female
  Weight: 77.11 kg

DRUGS (2)
  1. RESTASIS [Suspect]
     Indication: DRY EYE
  2. FLUOROMETHOLONE [Suspect]
     Indication: DRY EYE

REACTIONS (2)
  - Eye irritation [None]
  - Blindness unilateral [None]
